FAERS Safety Report 25956431 (Version 1)
Quarter: 2025Q4

REPORT INFORMATION
  Report Type: Spontaneous
  Country: US (occurrence: US)
  Receive Date: 20251024
  Receipt Date: 20251024
  Transmission Date: 20260118
  Serious: Yes (Other)
  Sender: MYLAN
  Company Number: US-MYLANLABS-2025M1090542

PATIENT
  Age: 54 Year
  Sex: Male

DRUGS (40)
  1. KETOROLAC [Suspect]
     Active Substance: KETOROLAC TROMETHAMINE
     Indication: Cystoid macular oedema
     Dosage: UNK, 3 YEARS POST SURGERY
  2. KETOROLAC [Suspect]
     Active Substance: KETOROLAC TROMETHAMINE
     Dosage: UNK, 3 YEARS POST SURGERY
  3. KETOROLAC [Suspect]
     Active Substance: KETOROLAC TROMETHAMINE
     Dosage: UNK, 3 YEARS POST SURGERY
     Route: 061
  4. KETOROLAC [Suspect]
     Active Substance: KETOROLAC TROMETHAMINE
     Dosage: UNK, 3 YEARS POST SURGERY
     Route: 061
  5. KETOROLAC [Suspect]
     Active Substance: KETOROLAC TROMETHAMINE
     Dosage: UNK, QID (OVER A 10-MONTH PERIOD)
  6. KETOROLAC [Suspect]
     Active Substance: KETOROLAC TROMETHAMINE
     Dosage: UNK, QID (OVER A 10-MONTH PERIOD)
  7. KETOROLAC [Suspect]
     Active Substance: KETOROLAC TROMETHAMINE
     Dosage: UNK, QID (OVER A 10-MONTH PERIOD)
     Route: 061
  8. KETOROLAC [Suspect]
     Active Substance: KETOROLAC TROMETHAMINE
     Dosage: UNK, QID (OVER A 10-MONTH PERIOD)
     Route: 061
  9. PREDNISOLONE [Suspect]
     Active Substance: PREDNISOLONE
     Indication: Cystoid macular oedema
     Dosage: UNK, 7 MONTHS PRIOR TO SURGERY AND 3 YEARS POST SURGERY
  10. PREDNISOLONE [Suspect]
     Active Substance: PREDNISOLONE
     Dosage: UNK, 7 MONTHS PRIOR TO SURGERY AND 3 YEARS POST SURGERY
     Route: 061
  11. PREDNISOLONE [Suspect]
     Active Substance: PREDNISOLONE
     Dosage: UNK, 7 MONTHS PRIOR TO SURGERY AND 3 YEARS POST SURGERY
     Route: 061
  12. PREDNISOLONE [Suspect]
     Active Substance: PREDNISOLONE
     Dosage: UNK, 7 MONTHS PRIOR TO SURGERY AND 3 YEARS POST SURGERY
  13. DIFLUPREDNATE OPHTHALMIC EMULSION [Suspect]
     Active Substance: DIFLUPREDNATE
     Indication: Cystoid macular oedema
     Dosage: UNK, Q2H (OVER A 10-MONTH PERIOD)
  14. DIFLUPREDNATE OPHTHALMIC EMULSION [Suspect]
     Active Substance: DIFLUPREDNATE
     Dosage: UNK, Q2H (OVER A 10-MONTH PERIOD)
     Route: 061
  15. DIFLUPREDNATE OPHTHALMIC EMULSION [Suspect]
     Active Substance: DIFLUPREDNATE
     Dosage: UNK, Q2H (OVER A 10-MONTH PERIOD)
     Route: 061
  16. DIFLUPREDNATE OPHTHALMIC EMULSION [Suspect]
     Active Substance: DIFLUPREDNATE
     Dosage: UNK, Q2H (OVER A 10-MONTH PERIOD)
  17. TRIAMCINOLONE ACETONIDE [Suspect]
     Active Substance: TRIAMCINOLONE ACETONIDE
     Indication: Cystoid macular oedema
     Dosage: 40 MILLIGRAM SUB-TENON INJECTION, FOR THREE DOSES, OVER A 10-MONTH PERIOD
  18. TRIAMCINOLONE ACETONIDE [Suspect]
     Active Substance: TRIAMCINOLONE ACETONIDE
     Dosage: 40 MILLIGRAM SUB-TENON INJECTION, FOR THREE DOSES, OVER A 10-MONTH PERIOD
     Route: 065
  19. TRIAMCINOLONE ACETONIDE [Suspect]
     Active Substance: TRIAMCINOLONE ACETONIDE
     Dosage: 40 MILLIGRAM SUB-TENON INJECTION, FOR THREE DOSES, OVER A 10-MONTH PERIOD
     Route: 065
  20. TRIAMCINOLONE ACETONIDE [Suspect]
     Active Substance: TRIAMCINOLONE ACETONIDE
     Dosage: 40 MILLIGRAM SUB-TENON INJECTION, FOR THREE DOSES, OVER A 10-MONTH PERIOD
  21. AFLIBERCEPT [Suspect]
     Active Substance: AFLIBERCEPT
     Indication: Cystoid macular oedema
     Dosage: 2 MILLIGRAM, 2MG IN 0.05CC OVER A 10-MONTH PERIOD
  22. AFLIBERCEPT [Suspect]
     Active Substance: AFLIBERCEPT
     Dosage: 2 MILLIGRAM, 2MG IN 0.05CC OVER A 10-MONTH PERIOD
  23. AFLIBERCEPT [Suspect]
     Active Substance: AFLIBERCEPT
     Dosage: 2 MILLIGRAM, 2MG IN 0.05CC OVER A 10-MONTH PERIOD
  24. AFLIBERCEPT [Suspect]
     Active Substance: AFLIBERCEPT
     Dosage: 2 MILLIGRAM, 2MG IN 0.05CC OVER A 10-MONTH PERIOD
  25. DIMETHICONE [Concomitant]
     Active Substance: DIMETHICONE
     Indication: Rhegmatogenous retinal detachment
     Dosage: UNK, FILL PLACEMENT
  26. DIMETHICONE [Concomitant]
     Active Substance: DIMETHICONE
     Dosage: UNK, FILL PLACEMENT
  27. DIMETHICONE [Concomitant]
     Active Substance: DIMETHICONE
     Dosage: UNK, FILL PLACEMENT
     Route: 065
  28. DIMETHICONE [Concomitant]
     Active Substance: DIMETHICONE
     Dosage: UNK, FILL PLACEMENT
     Route: 065
  29. DIMETHICONE [Concomitant]
     Active Substance: DIMETHICONE
     Dosage: UNK, FILL PLACEMENT RE-CHALLENGED
  30. DIMETHICONE [Concomitant]
     Active Substance: DIMETHICONE
     Dosage: UNK, FILL PLACEMENT RE-CHALLENGED
  31. DIMETHICONE [Concomitant]
     Active Substance: DIMETHICONE
     Dosage: UNK, FILL PLACEMENT RE-CHALLENGED
     Route: 065
  32. DIMETHICONE [Concomitant]
     Active Substance: DIMETHICONE
     Dosage: UNK, FILL PLACEMENT RE-CHALLENGED
     Route: 065
  33. VALACYCLOVIR [Concomitant]
     Active Substance: VALACYCLOVIR HYDROCHLORIDE
     Indication: Herpes simplex
     Dosage: 2 GRAM, TID (THRICE DAILY)
  34. VALACYCLOVIR [Concomitant]
     Active Substance: VALACYCLOVIR HYDROCHLORIDE
     Indication: Prophylaxis
     Dosage: 2 GRAM, TID (THRICE DAILY)
  35. VALACYCLOVIR [Concomitant]
     Active Substance: VALACYCLOVIR HYDROCHLORIDE
     Indication: Necrotising retinitis
     Dosage: 2 GRAM, TID (THRICE DAILY)
     Route: 048
  36. VALACYCLOVIR [Concomitant]
     Active Substance: VALACYCLOVIR HYDROCHLORIDE
     Dosage: 2 GRAM, TID (THRICE DAILY)
     Route: 048
  37. VALACYCLOVIR [Concomitant]
     Active Substance: VALACYCLOVIR HYDROCHLORIDE
     Dosage: 1 GRAM, TID (THRICE DAILY FOR 3 YEARS, THEN CONTINUED FOR ADDITIONAL 12 MONTHS)
  38. VALACYCLOVIR [Concomitant]
     Active Substance: VALACYCLOVIR HYDROCHLORIDE
     Dosage: 1 GRAM, TID (THRICE DAILY FOR 3 YEARS, THEN CONTINUED FOR ADDITIONAL 12 MONTHS)
  39. VALACYCLOVIR [Concomitant]
     Active Substance: VALACYCLOVIR HYDROCHLORIDE
     Dosage: 1 GRAM, TID (THRICE DAILY FOR 3 YEARS, THEN CONTINUED FOR ADDITIONAL 12 MONTHS)
     Route: 048
  40. VALACYCLOVIR [Concomitant]
     Active Substance: VALACYCLOVIR HYDROCHLORIDE
     Dosage: 1 GRAM, TID (THRICE DAILY FOR 3 YEARS, THEN CONTINUED FOR ADDITIONAL 12 MONTHS)
     Route: 048

REACTIONS (1)
  - Drug ineffective [Unknown]
